FAERS Safety Report 10483893 (Version 2)
Quarter: 2014Q3

REPORT INFORMATION
  Report Type: Report from Study
  Country: US (occurrence: US)
  Receive Date: 20140930
  Receipt Date: 20140930
  Transmission Date: 20150326
  Serious: Yes (Death, Hospitalization, Other)
  Sender: FDA-Public Use
  Company Number: US-ASTELLAS-2014US011929

PATIENT
  Age: 87 Year
  Sex: Female

DRUGS (2)
  1. ERLOTINIB [Suspect]
     Active Substance: ERLOTINIB
     Indication: NON-SMALL CELL LUNG CANCER
     Route: 048
     Dates: start: 20050820, end: 20050820
  2. ERLOTINIB [Suspect]
     Active Substance: ERLOTINIB
     Indication: MALIGNANT RESPIRATORY TRACT NEOPLASM
     Route: 048

REACTIONS (10)
  - Lung neoplasm malignant [Fatal]
  - Anaemia [Unknown]
  - Diarrhoea [Unknown]
  - Metastases to lymph nodes [Unknown]
  - Pruritus [Unknown]
  - Dehydration [Unknown]
  - Rash pruritic [Unknown]
  - Syncope [Recovered/Resolved]
  - Pain [Unknown]
  - Rash [Unknown]

NARRATIVE: CASE EVENT DATE: 20050821
